FAERS Safety Report 7491849-X (Version None)
Quarter: 2011Q2

REPORT INFORMATION
  Report Type: 
  Country: None (occurrence: None)
  Receive Date: 20110519
  Receipt Date: 20110518
  Transmission Date: 20111010
  Serious: Yes (Hospitalization)
  Sender: FDA-Public Use
  Company Number: ES-BRISTOL-MYERS SQUIBB COMPANY-13278106

PATIENT
  Age: 57 Year
  Sex: Male

DRUGS (3)
  1. CISPLATIN [Suspect]
     Indication: HEAD AND NECK CANCER
     Dosage: MOST RECENT 10JAN2006
     Route: 042
     Dates: start: 20051107, end: 20060110
  2. CETUXIMAB [Suspect]
     Indication: HEAD AND NECK CANCER
     Dosage: TOTAL INF:9 MOST RECENT 16JAN2006
     Route: 041
     Dates: start: 20051107, end: 20060116
  3. FLUOROURACIL [Suspect]
     Indication: HEAD AND NECK CANCER
     Route: 042
     Dates: start: 20051107, end: 20060110

REACTIONS (3)
  - THROMBOCYTOPENIA [None]
  - NEUTROPENIA [None]
  - MUCOSAL INFLAMMATION [None]
